FAERS Safety Report 6508732-6 (Version None)
Quarter: 2009Q4

REPORT INFORMATION
  Report Type: 
  Country: None (occurrence: None)
  Receive Date: 20091221
  Receipt Date: 20090305
  Transmission Date: 20100525
  Serious: Yes (Other)
  Sender: FDA-Public Use
  Company Number: US-ASTRAZENECA-2008UW28744

PATIENT
  Age: 71 Year
  Sex: Female
  Weight: 55.8 kg

DRUGS (6)
  1. CRESTOR [Suspect]
     Indication: C-REACTIVE PROTEIN INCREASED
     Route: 048
     Dates: start: 20081212, end: 20081223
  2. CRESTOR [Suspect]
     Indication: BLOOD CHOLESTEROL INCREASED
     Route: 048
     Dates: start: 20081212, end: 20081223
  3. NEXIUM [Concomitant]
  4. VITAMINS [Concomitant]
  5. ASPIRIN [Concomitant]
  6. SINGULAIR [Concomitant]

REACTIONS (2)
  - ASTHENIA [None]
  - MYALGIA [None]
